FAERS Safety Report 23616466 (Version 1)
Quarter: 2024Q1

REPORT INFORMATION
  Report Type: Spontaneous
  Country: US (occurrence: None)
  Receive Date: 20240308
  Receipt Date: 20240308
  Transmission Date: 20240410
  Serious: Yes (Other)
  Sender: FDA-Public Use
  Company Number: None

PATIENT
  Age: 86 Year
  Sex: Male

DRUGS (1)
  1. DROXIDOPA [Suspect]
     Active Substance: DROXIDOPA
     Indication: Orthostatic hypotension
     Dosage: 400MG 3 TIMES A DAY BY MOUTH
     Route: 048
     Dates: start: 202310

REACTIONS (5)
  - Aggression [None]
  - Abnormal sleep-related event [None]
  - Physical assault [None]
  - Hallucination [None]
  - Fear [None]

NARRATIVE: CASE EVENT DATE: 20240301
